FAERS Safety Report 7364986-8 (Version None)
Quarter: 2011Q1

REPORT INFORMATION
  Report Type: 
  Country: None (occurrence: None)
  Receive Date: 20110321
  Receipt Date: 20110315
  Transmission Date: 20110831
  Serious: Yes (Other)
  Sender: FDA-Public Use
  Company Number: MX-TEVA-271572ISR

PATIENT
  Sex: Female

DRUGS (6)
  1. DEXTROPROPOXYPHENE [Concomitant]
     Indication: PAIN
     Dosage: FREQUENCY: 1 EVERY 8 HOURS AS NEEDED
  2. OMEPRAZOLE [Concomitant]
  3. ACETAMINOPHEN [Concomitant]
     Indication: PAIN
     Dosage: FREQUENCY: 1 EVERY 8 HOURS AS NEEDED
  4. FLUOROURACIL [Suspect]
     Indication: HEAD AND NECK CANCER
     Route: 042
     Dates: start: 20101201, end: 20110215
  5. CETUXIMAB [Suspect]
     Indication: HEAD AND NECK CANCER
     Route: 042
     Dates: start: 20101201, end: 20110215
  6. CISPLATIN [Suspect]
     Indication: HEAD AND NECK CANCER
     Route: 042
     Dates: start: 20101201, end: 20110215

REACTIONS (4)
  - HYPONATRAEMIA [None]
  - ASTHENIA [None]
  - DECREASED APPETITE [None]
  - DEHYDRATION [None]
